FAERS Safety Report 14668124 (Version 1)
Quarter: 2018Q1

REPORT INFORMATION
  Report Type: Spontaneous
  Country: US (occurrence: US)
  Receive Date: 20180321
  Receipt Date: 20180321
  Transmission Date: 20180509
  Serious: Yes (Hospitalization, Other)
  Sender: FDA-Public Use
  Company Number: None

PATIENT
  Age: 28 Year
  Sex: Male
  Weight: 99 kg

DRUGS (5)
  1. TOPIRAMATE 20MG [Suspect]
     Active Substance: TOPIRAMATE
     Indication: MIGRAINE
     Dosage: ?          QUANTITY:1 TABLET(S);?
     Route: 048
  2. PROMETHAZINE [Concomitant]
     Active Substance: PROMETHAZINE\PROMETHAZINE HYDROCHLORIDE
  3. SUMATRIPTAN. [Concomitant]
     Active Substance: SUMATRIPTAN
  4. TROKENDI XR [Suspect]
     Active Substance: TOPIRAMATE
     Indication: MIGRAINE
     Dosage: ?          QUANTITY:1 CAPSULE(S);?
     Route: 048
  5. EXCEDRIN MIGRAINE [Concomitant]
     Active Substance: ACETAMINOPHEN\ASPIRIN\CAFFEINE

REACTIONS (8)
  - Headache [None]
  - Tinnitus [None]
  - Amnesia [None]
  - Pain [None]
  - Hypoaesthesia [None]
  - Nightmare [None]
  - Screaming [None]
  - Paraesthesia [None]

NARRATIVE: CASE EVENT DATE: 20110901
